FAERS Safety Report 8437733 (Version 2)
Quarter: 2012Q4

REPORT INFORMATION
  Report Type: Spontaneous
  Country: GB (occurrence: None)
  Receive Date: 20120221
  Receipt Date: 20121002
  Transmission Date: 20130627
  Serious: Yes (Death, Hospitalization)
  Sender: FDA-Public Use
  Company Number: 2012-00172

PATIENT
  Age: 36 Year
  Sex: Male

DRUGS (8)
  1. SIMVASTATIN [Suspect]
     Indication: PRODUCT USED FOR UNKNOWN INDICATION
     Dosage: ORAL
     Route: 048
  2. CLOZAPINE [Suspect]
     Indication: SCHIZOPHRENIA
     Dosage: (450 MG), ORAL
     Route: 048
     Dates: end: 20120109
  3. ARIPIPRAZOLE [Suspect]
     Indication: SCHIZOPHRENIA
     Dosage: (5 MG), ORAL
     Route: 048
  4. CLONAZEPAM(UNKNOWN) [Concomitant]
  5. FOLIC ACID(UNKNOWN) [Concomitant]
  6. OMEPRAZOLE(UNKNOWN) [Concomitant]
  7. VALPROIC ACID (SODIUM VALPROATE) (UNKNOWN) [Concomitant]
  8. WARFARIN(UNKNOWN) [Concomitant]

REACTIONS (14)
  - Hepatic function abnormal [None]
  - Renal impairment [None]
  - Neuroleptic malignant syndrome [None]
  - Sepsis [None]
  - Haemoglobin decreased [None]
  - Circulatory collapse [None]
  - Blood creatine phosphokinase increased [None]
  - Alanine aminotransferase increased [None]
  - Aspartate aminotransferase increased [None]
  - Blood glucose increased [None]
  - Blood triglycerides increased [None]
  - Pulmonary oedema [None]
  - Peritonitis [None]
  - Large intestine perforation [None]
